FAERS Safety Report 10256789 (Version 1)
Quarter: 2014Q2

REPORT INFORMATION
  Report Type: Spontaneous
  Country: FR (occurrence: FR)
  Receive Date: 20140624
  Receipt Date: 20140624
  Transmission Date: 20141212
  Serious: Yes (Other)
  Sender: FDA-Public Use
  Company Number: FR-JNJFOC-20140613739

PATIENT
  Age: 48 Year
  Sex: Female

DRUGS (2)
  1. NICORETTE SPRAY [Suspect]
     Indication: SMOKING CESSATION THERAPY
     Route: 055
     Dates: start: 20140412, end: 20140412
  2. LEVOTHYROX [Concomitant]
     Indication: PRODUCT USED FOR UNKNOWN INDICATION
     Route: 048

REACTIONS (3)
  - Asphyxia [Recovered/Resolved]
  - Cough [Recovered/Resolved]
  - Vomiting [Recovered/Resolved]
